FAERS Safety Report 5774739-X (Version None)
Quarter: 2008Q2

REPORT INFORMATION
  Report Type: 
  Country: None (occurrence: None)
  Receive Date: 20080617
  Receipt Date: 20080607
  Transmission Date: 20081010
  Serious: Yes (Other)
  Sender: FDA-Public Use
  Company Number: IT-TEVA-172671ISR

PATIENT
  Sex: Female

DRUGS (1)
  1. AMOXICILLIN + CLAVULANATE POTASSIUM [Suspect]
     Indication: TENDON INJURY
     Dosage: 875MG/ 125MG
     Route: 048
     Dates: start: 20080421, end: 20080421

REACTIONS (3)
  - DYSPNOEA [None]
  - PARAESTHESIA [None]
  - SYNCOPE [None]
